FAERS Safety Report 21992517 (Version 1)
Quarter: 2023Q1

REPORT INFORMATION
  Report Type: Report from Study
  Country: CO (occurrence: CO)
  Receive Date: 20230215
  Receipt Date: 20230215
  Transmission Date: 20230418
  Serious: Yes (Other)
  Sender: FDA-Public Use
  Company Number: CO-ABBVIE-4306855

PATIENT
  Sex: Female
  Weight: 50 kg

DRUGS (3)
  1. HUMIRA [Suspect]
     Active Substance: ADALIMUMAB
     Indication: Rheumatoid arthritis
     Route: 058
  2. HUMIRA [Suspect]
     Active Substance: ADALIMUMAB
  3. METFORMIN [Suspect]
     Active Substance: METFORMIN HYDROCHLORIDE
     Indication: Diabetes mellitus
     Dosage: 850 MILLIGRAM, AFTER LUNCH
     Route: 048
     Dates: start: 2013

REACTIONS (10)
  - Diabetic coma [Not Recovered/Not Resolved]
  - Hypertension [Not Recovered/Not Resolved]
  - Vaginal infection [Unknown]
  - Rheumatoid arthritis [Unknown]
  - Pain in extremity [Not Recovered/Not Resolved]
  - Diabetes mellitus [Not Recovered/Not Resolved]
  - Inflammation [Not Recovered/Not Resolved]
  - Influenza like illness [Recovered/Resolved]
  - Vulvovaginal burning sensation [Recovered/Resolved]
  - Weight decreased [Not Recovered/Not Resolved]

NARRATIVE: CASE EVENT DATE: 20130101
